FAERS Safety Report 7918660-7 (Version None)
Quarter: 2011Q4

REPORT INFORMATION
  Report Type: 
  Country: None (occurrence: None)
  Receive Date: 20111116
  Receipt Date: 20111114
  Transmission Date: 20120403
  Serious: Yes (Other)
  Sender: FDA-Public Use
  Company Number: CA-TEVA-309225USA

PATIENT
  Age: 27 Year
  Sex: Female

DRUGS (3)
  1. LITHIUM [Interacting]
     Indication: MANIA
     Dosage: 1050 MILLIGRAM;
  2. QUETIAPINE [Interacting]
     Indication: INSOMNIA
  3. RISPERIDONE [Suspect]
     Indication: BIPOLAR DISORDER

REACTIONS (2)
  - DIABETES INSIPIDUS [None]
  - DRUG INTERACTION [None]
